FAERS Safety Report 4575522-3 (Version None)
Quarter: 2005Q1

REPORT INFORMATION
  Report Type: 
  Country: None (occurrence: None)
  Receive Date: 20050128
  Receipt Date: 20050128
  Transmission Date: 20050727
  Serious: Yes (Other)
  Sender: FDA-Public Use
  Company Number: None

PATIENT
  Sex: Male
  Weight: 72.5755 kg

DRUGS (4)
  1. LORAZEPAM [Suspect]
     Indication: INSOMNIA
     Dosage: 0.5 MG  AT BEDTIME   ORAL
     Route: 048
     Dates: start: 20040720, end: 20040725
  2. NEURONTIN [Suspect]
     Indication: NEUROPATHY
     Dosage: 300 MG   TWICE PER DAY   ORAL
     Route: 048
     Dates: start: 20040105, end: 20050127
  3. ACETAMINOPHEN [Concomitant]
  4. TRIAMT/HCTZ [Concomitant]

REACTIONS (2)
  - ABNORMAL DREAMS [None]
  - BRUXISM [None]
